FAERS Safety Report 15746918 (Version 1)
Quarter: 2018Q4

REPORT INFORMATION
  Report Type: Spontaneous
  Country: US (occurrence: US)
  Receive Date: 20181220
  Receipt Date: 20181220
  Transmission Date: 20190205
  Serious: Yes (Other)
  Sender: FDA-Public Use
  Company Number: US-MYLANLABS-2018M1092150

PATIENT
  Age: 21 Year
  Sex: Female

DRUGS (4)
  1. URSODIOL CAPSULES [Suspect]
     Active Substance: URSODIOL
     Dosage: 300 MILLIGRAM
     Route: 048
  2. BETAMETHASONE. [Suspect]
     Active Substance: BETAMETHASONE
     Indication: CHOLESTASIS OF PREGNANCY
     Route: 065
  3. RIFAMPICIN [Suspect]
     Active Substance: RIFAMPIN
     Indication: CHOLESTASIS OF PREGNANCY
     Route: 048
  4. URSODIOL CAPSULES [Suspect]
     Active Substance: URSODIOL
     Indication: CHOLESTASIS OF PREGNANCY
     Dosage: 300MG THREE TIMES DAILY; LATER IT WAS INCREASED TO 4 TIMES DAILY AFTER ONE WEEK
     Route: 048

REACTIONS (3)
  - Drug ineffective [Unknown]
  - Exposure during pregnancy [Recovered/Resolved]
  - Normal newborn [Recovered/Resolved]
